FAERS Safety Report 8112333-6 (Version None)
Quarter: 2012Q1

REPORT INFORMATION
  Report Type: 
  Country: None (occurrence: None)
  Receive Date: 20120203
  Receipt Date: 20111005
  Transmission Date: 20120608
  Serious: No
  Sender: FDA-Public Use
  Company Number: US-ASTRAZENECA-2011SE59781

PATIENT
  Age: 69 Year
  Sex: Female

DRUGS (10)
  1. MAGNESIUM [Concomitant]
  2. TIROSINT [Concomitant]
  3. VANDETANIB [Suspect]
     Indication: THYROID CANCER
     Route: 048
  4. PANTANASE [Concomitant]
  5. TYLENOL W/ CODEINE [Concomitant]
  6. ZOCOR [Concomitant]
  7. ZOLPIDEM TARTRATE [Concomitant]
  8. HYDROCODONE BITARTRATE AND ACETAMINOPHEN [Concomitant]
  9. ASPIRIN [Concomitant]
  10. CALCIUM 500 [Concomitant]

REACTIONS (6)
  - FATIGUE [None]
  - GINGIVAL PAIN [None]
  - ARTHRALGIA [None]
  - MYALGIA [None]
  - CONSTIPATION [None]
  - ACNE [None]
